FAERS Safety Report 19108892 (Version 1)
Quarter: 2021Q2

REPORT INFORMATION
  Report Type: Spontaneous
  Country: US (occurrence: US)
  Receive Date: 20210408
  Receipt Date: 20210408
  Transmission Date: 20210717
  Serious: No
  Sender: FDA-Public Use
  Company Number: US-BAYER-2021-119109

PATIENT
  Sex: Female

DRUGS (2)
  1. ASPIRIN (PAIN AND FEVER) [Suspect]
     Active Substance: ASPIRIN
     Indication: FRACTURE PAIN
  2. ALEVE [Suspect]
     Active Substance: NAPROXEN SODIUM
     Indication: FRACTURE PAIN

REACTIONS (1)
  - Drug ineffective [None]
